FAERS Safety Report 10780439 (Version 1)
Quarter: 2015Q1

REPORT INFORMATION
  Report Type: Spontaneous
  Country: US (occurrence: US)
  Receive Date: 20150210
  Receipt Date: 20150210
  Transmission Date: 20150721
  Serious: No
  Sender: FDA-Public Use
  Company Number: US-GLAXOSMITHKLINE-A1085353A

PATIENT

DRUGS (1)
  1. TYKERB [Suspect]
     Active Substance: LAPATINIB DITOSYLATE
     Indication: BREAST CANCER
     Dosage: 250 MG TAKE 3 TABLETS OR 750 MG TWICE DAILYREDUCED TO ONE TABLET OR 250 MG DAILY THEN WILL GRAD[...]
     Route: 065

REACTIONS (2)
  - Drug intolerance [Unknown]
  - Adverse drug reaction [Recovering/Resolving]
